FAERS Safety Report 23923154 (Version 4)
Quarter: 2024Q3

REPORT INFORMATION
  Report Type: Spontaneous
  Country: CA (occurrence: CA)
  Receive Date: 20240531
  Receipt Date: 20240913
  Transmission Date: 20241017
  Serious: Yes (Other)
  Sender: CELLTRION
  Company Number: CA-PFIZER INC-202400025909

PATIENT

DRUGS (8)
  1. INFLECTRA [Suspect]
     Active Substance: INFLIXIMAB-DYYB
     Indication: Colitis ulcerative
     Dosage: 600 MG 10MG/KG, INDUCTION, WEEK 0, 6, 12 TO 14
     Route: 042
     Dates: start: 20240127, end: 2024
  2. INFLECTRA [Suspect]
     Active Substance: INFLIXIMAB-DYYB
     Dosage: 600 MG 10MG/KG, INDUCTION, WEEK 0, 6, 12 TO 14
     Route: 042
     Dates: start: 20240127
  3. INFLECTRA [Suspect]
     Active Substance: INFLIXIMAB-DYYB
     Dosage: 600 MG 10MG/KG, INDUCTION, WEEK 0, 6, 12 TO 14
     Route: 042
     Dates: start: 20240127
  4. INFLECTRA [Suspect]
     Active Substance: INFLIXIMAB-DYYB
     Dosage: 300 MG THIRD DOSE
     Route: 042
     Dates: start: 20240511, end: 20240511
  5. INFLECTRA [Suspect]
     Active Substance: INFLIXIMAB-DYYB
     Dosage: 400 MG, 31 WEEKS AND 4 DAYS(EVERY 8 WEEK)
     Route: 042
     Dates: start: 20240904
  6. MESALAMINE [Concomitant]
     Active Substance: MESALAMINE
     Indication: Colitis ulcerative
     Dosage: 1 DF
  7. MESALAMINE [Concomitant]
     Active Substance: MESALAMINE
     Dosage: 4.8 G, DAILY,(1DF)
     Route: 048
  8. PREDNISONE [Concomitant]
     Active Substance: PREDNISONE
     Dosage: 1 DF

REACTIONS (6)
  - Haematochezia [Not Recovered/Not Resolved]
  - Perineal pain [Recovered/Resolved]
  - Clostridium difficile infection [Not Recovered/Not Resolved]
  - Faecal calprotectin increased [Not Recovered/Not Resolved]
  - Condition aggravated [Not Recovered/Not Resolved]
  - Off label use [Unknown]

NARRATIVE: CASE EVENT DATE: 20240101
